FAERS Safety Report 6268416-9 (Version None)
Quarter: 2009Q3

REPORT INFORMATION
  Report Type: 
  Country: None (occurrence: None)
  Receive Date: 20090709
  Receipt Date: 20090709
  Transmission Date: 20100115
  Serious: Yes (Death)
  Sender: FDA-Public Use
  Company Number: None

PATIENT
  Sex: Male
  Weight: 73.8 kg

DRUGS (2)
  1. NELFINAVIR [Suspect]
     Indication: LIPOSARCOMA
     Dosage: 3000MG TWICE DAILY PO
     Route: 048
     Dates: start: 20090521, end: 20090618
  2. NELFINAVIR [Suspect]
     Indication: METASTASES TO LUNG
     Dosage: 3000MG TWICE DAILY PO
     Route: 048
     Dates: start: 20090521, end: 20090618

REACTIONS (8)
  - COUGH [None]
  - DYSPNOEA [None]
  - FATIGUE [None]
  - HAEMOPTYSIS [None]
  - METASTASES TO LUNG [None]
  - POOR QUALITY SLEEP [None]
  - TRACHEAL NEOPLASM [None]
  - WEIGHT DECREASED [None]
